FAERS Safety Report 11941770 (Version 4)
Quarter: 2018Q3

REPORT INFORMATION
  Report Type: Report from Study
  Country: CH (occurrence: CH)
  Receive Date: 20160123
  Receipt Date: 20180717
  Transmission Date: 20181010
  Serious: Yes (Death, Hospitalization, Other)
  Sender: FDA-Public Use
  Company Number: CH-BRISTOL-MYERS SQUIBB COMPANY-BMS-2016-002080

PATIENT
  Age: 74 Year
  Sex: Female
  Weight: 63 kg

DRUGS (6)
  1. CALCIUM D3                         /00944201/ [Concomitant]
     Active Substance: CALCIUM CARBONATE\CHOLECALCIFEROL
     Indication: PRODUCT USED FOR UNKNOWN INDICATION
     Dosage: UNK, QD
     Route: 065
  2. ASPIRIN CARDIO [Concomitant]
     Active Substance: ASPIRIN
     Indication: THROMBOSIS PROPHYLAXIS
     Dosage: UNK UNK, QD
     Route: 048
     Dates: start: 20151221, end: 20160105
  3. LENALIDOMIDE [Suspect]
     Active Substance: LENALIDOMIDE
     Indication: PLASMA CELL MYELOMA
     Dosage: 10 MG, QD
     Route: 048
     Dates: start: 20151221, end: 20160104
  4. DEXAMETHASONE. [Suspect]
     Active Substance: DEXAMETHASONE
     Indication: PLASMA CELL MYELOMA
     Dosage: 1 DF, UNK
     Route: 048
     Dates: start: 20150104, end: 20150105
  5. ELOTUZUMAB. [Suspect]
     Active Substance: ELOTUZUMAB
     Indication: PRODUCT USED FOR UNKNOWN INDICATION
     Dosage: 610 MG, UNK
     Route: 042
     Dates: start: 20160104, end: 20160105
  6. ELOTUZUMAB. [Suspect]
     Active Substance: ELOTUZUMAB
     Indication: PLASMA CELL MYELOMA
     Dosage: 610 MG, UNK
     Route: 042
     Dates: start: 20151221, end: 20151228

REACTIONS (14)
  - Acute kidney injury [Recovering/Resolving]
  - Transfusion [Recovering/Resolving]
  - Gastrointestinal infection [Recovering/Resolving]
  - Urosepsis [Recovered/Resolved]
  - Escherichia test positive [Unknown]
  - Anaemia [Unknown]
  - Neutropenia [Unknown]
  - Musculoskeletal pain [Unknown]
  - Sepsis [Fatal]
  - Malignant neoplasm progression [Unknown]
  - Arthralgia [Unknown]
  - Pancytopenia [Recovered/Resolved]
  - Thrombocytopenia [Unknown]
  - Intestinal obstruction [Recovered/Resolved]

NARRATIVE: CASE EVENT DATE: 20151230
